FAERS Safety Report 6805906-1 (Version None)
Quarter: 2010Q2

REPORT INFORMATION
  Report Type: 
  Country: None (occurrence: None)
  Receive Date: 20100629
  Receipt Date: 20080118
  Transmission Date: 20101027
  Serious: No
  Sender: FDA-Public Use
  Company Number: US-PFIZER INC-2007090813

PATIENT
  Sex: Female
  Weight: 61.363 kg

DRUGS (3)
  1. ALPRAZOLAM [Suspect]
     Indication: PANIC ATTACK
     Route: 048
  2. ALPRAZOLAM [Suspect]
     Indication: PALPITATIONS
  3. METHADONE [Concomitant]

REACTIONS (1)
  - DRUG INEFFECTIVE [None]
